FAERS Safety Report 12887944 (Version 6)
Quarter: 2018Q1

REPORT INFORMATION
  Report Type: Report from Study
  Country: FR (occurrence: FR)
  Receive Date: 20161027
  Receipt Date: 20180116
  Transmission Date: 20180508
  Serious: Yes (Hospitalization)
  Sender: FDA-Public Use
  Company Number: FR-ROCHE-1845611

PATIENT
  Age: 63 Year
  Sex: Male
  Weight: 93 kg

DRUGS (19)
  1. ARSENICUM ALBUM [Concomitant]
     Indication: ANXIETY
     Route: 065
     Dates: start: 20160830
  2. NAB-PACLITAXEL [Suspect]
     Active Substance: PACLITAXEL
     Indication: NON-SMALL CELL LUNG CANCER STAGE IV
     Dosage: MOST RECENT DOSE OF 225MG ADMINISTERED ON 18/OCT/2016 AT 1240?DAYS 1, 8, AND 15 OF EACH 21-DAY CYCLE
     Route: 042
     Dates: start: 20160830
  3. OXYCONTIN [Concomitant]
     Active Substance: OXYCODONE HYDROCHLORIDE
     Indication: PAIN
     Route: 065
     Dates: start: 20160811
  4. NERFS [Concomitant]
     Indication: PARAESTHESIA
     Dosage: 4CH
     Route: 065
     Dates: start: 20161001, end: 20170215
  5. ZYVOXID [Concomitant]
     Active Substance: LINEZOLID
     Indication: INFECTION
     Route: 065
     Dates: start: 20170325
  6. PLITICAN [Concomitant]
     Active Substance: ALIZAPRIDE HYDROCHLORIDE
     Indication: NAUSEA
     Route: 065
     Dates: start: 20161108, end: 20161112
  7. ZINCUM METALLICUM [Concomitant]
     Indication: PARAESTHESIA
     Dosage: 4CH
     Route: 065
     Dates: start: 20161001, end: 20170215
  8. ZINCUM METALLICUM [Concomitant]
     Indication: HYPOAESTHESIA
  9. TAZOCILLINE [Concomitant]
     Active Substance: PIPERACILLIN SODIUM\TAZOBACTAM SODIUM
     Indication: INFECTION
     Route: 065
     Dates: start: 20170325
  10. NERFS [Concomitant]
     Indication: HYPOAESTHESIA
  11. CARBOPLATIN. [Suspect]
     Active Substance: CARBOPLATIN
     Indication: NON-SMALL CELL LUNG CANCER STAGE IV
     Dosage: MOST RECENT DOSE OF 810 MG ADMINISTERED ON 18/OCT/2016 AT 1325?AREA UNDER THE CONCENTRATION CURVE (A
     Route: 042
     Dates: start: 20160830
  12. CALCAREA CARBONICA [Concomitant]
     Indication: PARAESTHESIA
     Route: 065
     Dates: start: 20161001, end: 20170215
  13. CALCAREA CARBONICA [Concomitant]
     Indication: HYPOAESTHESIA
  14. SELENIUM [Concomitant]
     Active Substance: SELENIUM
     Indication: PARAESTHESIA
     Dosage: 4CH
     Route: 065
     Dates: start: 20161001, end: 20170215
  15. ATEZOLIZUMAB. [Suspect]
     Active Substance: ATEZOLIZUMAB
     Indication: NON-SMALL CELL LUNG CANCER STAGE IV
     Dosage: MOST RECENT DOSE OF 1200MG ADMINISTERED ON 18/OCT/2016 AT 1130
     Route: 042
     Dates: start: 20160830
  16. OXYNORM [Concomitant]
     Active Substance: OXYCODONE HYDROCHLORIDE
     Indication: PAIN
  17. ACONITUM NAPELLUS [Concomitant]
     Active Substance: ACONITUM NAPELLUS\HOMEOPATHICS
     Indication: ANXIETY
     Route: 065
     Dates: start: 20160830
  18. SELENIUM [Concomitant]
     Active Substance: SELENIUM
     Indication: HYPOAESTHESIA
  19. GENTAMICINE [Concomitant]
     Active Substance: GENTAMICIN
     Indication: INFECTION
     Route: 065
     Dates: start: 20170325

REACTIONS (1)
  - General physical health deterioration [Recovered/Resolved]

NARRATIVE: CASE EVENT DATE: 20161021
